FAERS Safety Report 8261360-7 (Version None)
Quarter: 2012Q2

REPORT INFORMATION
  Report Type: 
  Country: None (occurrence: None)
  Receive Date: 20120405
  Receipt Date: 20120326
  Transmission Date: 20120825
  Serious: Yes (Other)
  Sender: FDA-Public Use
  Company Number: JP-PFIZER INC-2012081745

PATIENT
  Age: 75 Year
  Sex: Female

DRUGS (2)
  1. SOLU-CORTEF [Concomitant]
     Dosage: UNK
     Dates: start: 20120125, end: 20120125
  2. CEFOBID [Suspect]
     Dosage: 1 G, 2X/DAY
     Route: 041
     Dates: start: 20120125, end: 20120125

REACTIONS (2)
  - NAUSEA [None]
  - CHEST DISCOMFORT [None]
